FAERS Safety Report 8399215-X (Version None)
Quarter: 2012Q2

REPORT INFORMATION
  Report Type: 
  Country: None (occurrence: None)
  Receive Date: 20120531
  Receipt Date: 20120524
  Transmission Date: 20120825
  Serious: Yes (Death, Hospitalization)
  Sender: FDA-Public Use
  Company Number: US-GLAXOSMITHKLINE-A0954362A

PATIENT
  Age: 69 Year
  Sex: Female

DRUGS (7)
  1. PAXIL [Concomitant]
  2. METFORMIN HCL [Concomitant]
  3. PREMARIN [Concomitant]
  4. SINGULAIR [Concomitant]
  5. AVANDIA [Suspect]
     Indication: TYPE 2 DIABETES MELLITUS
     Dosage: 4MG PER DAY
     Route: 048
     Dates: start: 20030720, end: 20100601
  6. VALIUM [Concomitant]
  7. ZOFRAN [Concomitant]

REACTIONS (6)
  - CARDIAC FAILURE CONGESTIVE [None]
  - ANGINA UNSTABLE [None]
  - CORONARY ARTERY DISEASE [None]
  - MYOCARDIAL INFARCTION [None]
  - CARDIAC TAMPONADE [None]
  - ATRIAL FLUTTER [None]
